FAERS Safety Report 11196609 (Version 1)
Quarter: 2015Q2

REPORT INFORMATION
  Report Type: Spontaneous
  Country: US (occurrence: None)
  Receive Date: 20150616
  Receipt Date: 20150616
  Transmission Date: 20150821
  Serious: Yes (Disabling, Other)
  Sender: FDA-Public Use
  Company Number: None

PATIENT
  Age: 67 Year
  Sex: Male
  Weight: 69.4 kg

DRUGS (2)
  1. LEVAQUIN [Suspect]
     Active Substance: LEVOFLOXACIN
     Indication: PNEUMONIA
     Dosage: 1 PILL ONCE DAILY TAKEN BY MOUTH
     Route: 048
     Dates: start: 20091118, end: 20091128
  2. MULTI VITAMIN [Concomitant]
     Active Substance: VITAMINS

REACTIONS (14)
  - Anaemia [None]
  - Asthenia [None]
  - Weight decreased [None]
  - Delusion [None]
  - Inflammation [None]
  - Muscle atrophy [None]
  - Skin discolouration [None]
  - Fatigue [None]
  - Disorientation [None]
  - Confusional state [None]
  - Tremor [None]
  - Parkinson^s disease [None]
  - Myalgia [None]
  - Pyrexia [None]

NARRATIVE: CASE EVENT DATE: 20091123
